FAERS Safety Report 20326890 (Version 1)
Quarter: 2022Q1

REPORT INFORMATION
  Report Type: Spontaneous
  Country: US (occurrence: US)
  Receive Date: 20220112
  Receipt Date: 20220112
  Transmission Date: 20220423
  Serious: No
  Sender: FDA-Public Use
  Company Number: US-BAUSCH-BL-2022-000603

PATIENT
  Age: 56 Year
  Sex: Female

DRUGS (2)
  1. LACRISERT [Suspect]
     Active Substance: HYDROXYPROPYL CELLULOSE
     Indication: Sjogren^s syndrome
     Dosage: ONCE OR TWICE A DAY IN THE EYES
     Route: 047
     Dates: end: 2021
  2. BLINK TEARS [Concomitant]
     Active Substance: POLYETHYLENE GLYCOL 400
     Indication: Sjogren^s syndrome

REACTIONS (5)
  - Instillation site lacrimation [Unknown]
  - Instillation site pain [Unknown]
  - Instillation site erythema [Unknown]
  - Therapy interrupted [Unknown]
  - Therapy change [Unknown]

NARRATIVE: CASE EVENT DATE: 20210101
